FAERS Safety Report 23115208 (Version 1)
Quarter: 2023Q4

REPORT INFORMATION
  Report Type: Spontaneous
  Country: US (occurrence: None)
  Receive Date: 20231026
  Receipt Date: 20231026
  Transmission Date: 20240110
  Serious: Yes (Other)
  Sender: FDA-Public Use
  Company Number: None

PATIENT
  Age: 68 Year
  Sex: Female
  Weight: 98.1 kg

DRUGS (4)
  1. DEPO-MEDROL [Suspect]
     Active Substance: METHYLPREDNISOLONE ACETATE
     Indication: Back pain
     Dates: start: 20231020, end: 20231020
  2. VALSARTAN [Concomitant]
     Active Substance: VALSARTAN
  3. Amlodepine [Concomitant]
  4. DOXEPIN [Concomitant]
     Active Substance: DOXEPIN

REACTIONS (3)
  - Anxiety [None]
  - Insomnia [None]
  - Depressive symptom [None]

NARRATIVE: CASE EVENT DATE: 20231024
